FAERS Safety Report 4584773-3 (Version None)
Quarter: 2005Q1

REPORT INFORMATION
  Report Type: 
  Country: None (occurrence: None)
  Receive Date: 20050217
  Receipt Date: 20050204
  Transmission Date: 20050727
  Serious: Yes (Hospitalization, Other)
  Sender: FDA-Public Use
  Company Number: ES-JNJFOC-20050202122

PATIENT
  Sex: Male

DRUGS (4)
  1. REMICADE [Suspect]
     Route: 042
  2. REMICADE [Suspect]
     Indication: CROHN'S DISEASE
     Dosage: PATIENT RECEIVED 1 DOSE ONLY.
     Route: 042
  3. IMUREL [Concomitant]
  4. CORTICOSTEROIDS [Concomitant]

REACTIONS (2)
  - FACIAL PALSY [None]
  - INFUSION RELATED REACTION [None]
